FAERS Safety Report 15394282 (Version 1)
Quarter: 2018Q3

REPORT INFORMATION
  Report Type: Spontaneous
  Country: US (occurrence: US)
  Receive Date: 20180918
  Receipt Date: 20180918
  Transmission Date: 20181010
  Serious: Yes (Other)
  Sender: FDA-Public Use
  Company Number: US-AUROBINDO-AUR-APL-2018-045635

PATIENT
  Age: 60 Year
  Sex: Female

DRUGS (5)
  1. OXYCODONE [Suspect]
     Active Substance: OXYCODONE
     Dosage: 96 MILLIGRAM, DAILY
     Route: 048
  2. HYDROMORPHONE [Suspect]
     Active Substance: HYDROMORPHONE
     Indication: PALLIATIVE CARE
     Dosage: UNK
     Route: 042
  3. LIDOCAINE. [Suspect]
     Active Substance: LIDOCAINE
     Indication: NEURALGIA
     Dosage: 0.5 MILLIGRAM/KILOGRAM, EVERY HOUR
     Route: 065
  4. LIDOCAINE. [Suspect]
     Active Substance: LIDOCAINE
     Dosage: 20 MILLIGRAM/KILOGRAM, EVERY HOUR
     Route: 065
  5. OXYCODONE [Suspect]
     Active Substance: OXYCODONE
     Indication: PALLIATIVE CARE
     Dosage: 300 MILLIGRAM, DAILY
     Route: 048

REACTIONS (6)
  - Paranoia [Unknown]
  - Delirium [Recovering/Resolving]
  - Hallucinations, mixed [Unknown]
  - Unresponsive to stimuli [Unknown]
  - Agitation [Unknown]
  - Confusional state [Unknown]
